FAERS Safety Report 7777651-X (Version None)
Quarter: 2011Q3

REPORT INFORMATION
  Report Type: 
  Country: None (occurrence: None)
  Receive Date: 20110926
  Receipt Date: 20110914
  Transmission Date: 20111222
  Serious: No
  Sender: FDA-Public Use
  Company Number: JP-UCBSA-041674

PATIENT
  Age: 51 Year
  Sex: Female

DRUGS (2)
  1. DEPAKENE [Suspect]
     Route: 048
     Dates: start: 20110805, end: 20110811
  2. KEPPRA [Suspect]
     Indication: EPILEPSY
     Route: 048
     Dates: start: 20110812, end: 20110816

REACTIONS (1)
  - WHITE BLOOD CELL COUNT DECREASED [None]
